FAERS Safety Report 8328168-5 (Version None)
Quarter: 2012Q2

REPORT INFORMATION
  Report Type: 
  Country: None (occurrence: None)
  Receive Date: 20120502
  Receipt Date: 20120501
  Transmission Date: 20120825
  Serious: Yes (Death, Hospitalization)
  Sender: FDA-Public Use
  Company Number: PHHY2011NL115580

PATIENT
  Sex: Male

DRUGS (10)
  1. ZOMETA [Suspect]
     Dosage: 4 MG/ 100 ML ONCE PER 28 DAYS
     Dates: start: 20110301
  2. TRAMADOL HCL [Concomitant]
  3. ZOMETA [Suspect]
     Dosage: 4 MG/ 100 ML ONCE PER 28 DAYS
     Dates: start: 20120207
  4. ASCAL [Concomitant]
  5. FERROUS SULFATE TAB [Concomitant]
  6. BICALUTAMIDE [Concomitant]
  7. METOPROLOL TARTRATE [Concomitant]
  8. ZOMETA [Suspect]
     Indication: PROSTATE CANCER METASTATIC
     Dosage: 4 MG/ 100 ML ONCE PER 28 DAYS
  9. ZOMETA [Suspect]
     Dosage: 4 MG/ 100 ML ONCE PER 28 DAYS
     Dates: start: 20120109
  10. PRAVASTATIN [Concomitant]

REACTIONS (6)
  - CEREBROVASCULAR ACCIDENT [None]
  - PNEUMONIA [None]
  - DEHYDRATION [None]
  - RENAL FAILURE [None]
  - SEPSIS [None]
  - HAEMOGLOBIN DECREASED [None]
